FAERS Safety Report 10631154 (Version 1)
Quarter: 2014Q4

REPORT INFORMATION
  Report Type: Spontaneous
  Country: US (occurrence: US)
  Receive Date: 20141205
  Receipt Date: 20141205
  Transmission Date: 20150529
  Serious: No
  Sender: FDA-Public Use
  Company Number: US-BRISTOL-MYERS SQUIBB COMPANY-20813929

PATIENT
  Age: 57 Year
  Sex: Female
  Weight: 86.17 kg

DRUGS (6)
  1. PLAVIX [Concomitant]
     Active Substance: CLOPIDOGREL BISULFATE
  2. ORENCIA [Suspect]
     Active Substance: ABATACEPT
     Indication: RHEUMATOID ARTHRITIS
     Dosage: LAST DOSE-17-MAY-2014
     Route: 058
     Dates: start: 201403
  3. PREDNISONE. [Concomitant]
     Active Substance: PREDNISONE
  4. METFORMIN HCL [Suspect]
     Active Substance: METFORMIN HYDROCHLORIDE
     Indication: DIABETES MELLITUS
  5. TYLENOL [Concomitant]
     Active Substance: ACETAMINOPHEN
     Indication: PAIN
     Dosage: 1 1/2 PILLS-FOR SEVERE PAIN
  6. PLAVIX [Concomitant]
     Active Substance: CLOPIDOGREL BISULFATE

REACTIONS (7)
  - Weight decreased [Unknown]
  - Insomnia [Unknown]
  - Liquid product physical issue [Unknown]
  - Fatigue [Unknown]
  - Feeling abnormal [Unknown]
  - Injection site bruising [Unknown]
  - Pain [Unknown]
